FAERS Safety Report 21461460 (Version 1)
Quarter: 2022Q4

REPORT INFORMATION
  Report Type: Report from Study
  Country: US (occurrence: US)
  Receive Date: 20221015
  Receipt Date: 20221015
  Transmission Date: 20230113
  Serious: No
  Sender: FDA-Public Use
  Company Number: US-ABBVIE-4145827

PATIENT
  Sex: Female

DRUGS (1)
  1. VENCLEXTA [Suspect]
     Active Substance: VENETOCLAX
     Indication: Acute lymphocytic leukaemia
     Dosage: 4 TABLETS BY MOUTH ONCE DAILY WITH FOOD AND FULL GLASS OF WATER
     Route: 048

REACTIONS (1)
  - Thrombocytopenia [Unknown]
